FAERS Safety Report 22397385 (Version 1)
Quarter: 2023Q2

REPORT INFORMATION
  Report Type: Spontaneous
  Country: US (occurrence: US)
  Receive Date: 20230602
  Receipt Date: 20230602
  Transmission Date: 20230722
  Serious: Yes (Death, Life-Threatening, Other)
  Sender: FDA-Public Use
  Company Number: US-drreddys-LIT/USA/23/0165990

PATIENT
  Age: 25 Year
  Sex: Male

DRUGS (6)
  1. GEMCITABINE [Suspect]
     Active Substance: GEMCITABINE
     Indication: Brain neoplasm
  2. DEXAMETHASONE [Suspect]
     Active Substance: DEXAMETHASONE
     Indication: Purtscher retinopathy
  3. THIOTEPA [Suspect]
     Active Substance: THIOTEPA
     Indication: Brain neoplasm
  4. PACLITAXEL [Suspect]
     Active Substance: PACLITAXEL
     Indication: Brain neoplasm
  5. OXALIPLATIN [Suspect]
     Active Substance: OXALIPLATIN
     Indication: Brain neoplasm
  6. ETOPOSIDE [Suspect]
     Active Substance: ETOPOSIDE
     Indication: Brain neoplasm

REACTIONS (5)
  - Death [Fatal]
  - Neoplasm recurrence [Unknown]
  - Engraftment syndrome [Unknown]
  - Granulomatosis with polyangiitis [Unknown]
  - Product use in unapproved indication [Unknown]
